FAERS Safety Report 5453225-0 (Version None)
Quarter: 2007Q3

REPORT INFORMATION
  Report Type: 
  Country: None (occurrence: None)
  Receive Date: 20070914
  Receipt Date: 20070906
  Transmission Date: 20080115
  Serious: Yes (Other)
  Sender: FDA-Public Use
  Company Number: US-PFIZER INC-2007074839

PATIENT
  Sex: Female
  Weight: 99.8 kg

DRUGS (3)
  1. LIPITOR [Suspect]
  2. ALL OTHER THERAPEUTIC PRODUCTS [Concomitant]
  3. METFORMIN HCL [Concomitant]

REACTIONS (8)
  - CARDIOMEGALY [None]
  - DENTAL CARIES [None]
  - EYE DISORDER [None]
  - MYALGIA [None]
  - MYOPATHY [None]
  - TOOTH DISORDER [None]
  - VISUAL DISTURBANCE [None]
  - WEIGHT INCREASED [None]
